FAERS Safety Report 4494332-9 (Version None)
Quarter: 2004Q4

REPORT INFORMATION
  Report Type: 
  Country: None (occurrence: None)
  Receive Date: 20041105
  Receipt Date: 20041029
  Transmission Date: 20050328
  Serious: Yes (Other)
  Sender: FDA-Public Use
  Company Number: PHNU2004DE03699

PATIENT

DRUGS (2)
  1. IMMUNOSPORIN [Suspect]
  2. METHOTREXATE [Concomitant]

REACTIONS (1)
  - PARKINSON'S DISEASE [None]
